FAERS Safety Report 4742381-5 (Version None)
Quarter: 2005Q3

REPORT INFORMATION
  Report Type: 
  Country: None (occurrence: None)
  Receive Date: 20050808
  Receipt Date: 20050722
  Transmission Date: 20060218
  Serious: Yes (Other)
  Sender: FDA-Public Use
  Company Number: USA050495608

PATIENT
  Age: 71 Year
  Sex: Female

DRUGS (4)
  1. FORTEO [Suspect]
     Indication: OSTEOPOROSIS
     Dates: start: 20050301
  2. ATENOLOL [Concomitant]
  3. ACTONEL [Concomitant]
  4. CALCIUM GLUCONATE [Concomitant]

REACTIONS (5)
  - BLOOD CALCIUM INCREASED [None]
  - HEADACHE [None]
  - HEART RATE INCREASED [None]
  - MUSCULAR WEAKNESS [None]
  - PHARMACEUTICAL PRODUCT COMPLAINT [None]
